FAERS Safety Report 24943472 (Version 3)
Quarter: 2025Q2

REPORT INFORMATION
  Report Type: Spontaneous
  Country: RU (occurrence: RU)
  Receive Date: 20250207
  Receipt Date: 20250502
  Transmission Date: 20250716
  Serious: Yes (Hospitalization, Other)
  Sender: FRESENIUS KABI
  Company Number: RU-FreseniusKabi-FK202502125

PATIENT
  Age: 46 Year
  Sex: Female
  Weight: 57 kg

DRUGS (1)
  1. PROPOFOL [Suspect]
     Active Substance: PROPOFOL
     Indication: Anaesthesia
     Route: 042
     Dates: start: 20250128

REACTIONS (2)
  - Septic shock [Recovered/Resolved]
  - Sepsis [Recovered/Resolved]

NARRATIVE: CASE EVENT DATE: 20250128
